FAERS Safety Report 4510819-4 (Version None)
Quarter: 2004Q4

REPORT INFORMATION
  Report Type: 
  Country: None (occurrence: None)
  Receive Date: 20041025
  Receipt Date: 20040330
  Transmission Date: 20050328
  Serious: Yes (Hospitalization)
  Sender: FDA-Public Use
  Company Number: NSADSS2003010537

PATIENT
  Age: 50 Year
  Sex: Male
  Weight: 104.3273 kg

DRUGS (14)
  1. REMICADE [Suspect]
     Indication: CROHN'S DISEASE
     Dosage: 445 MG, INTRAVENOUS
     Route: 042
     Dates: start: 20030923
  2. REMICADE [Suspect]
     Indication: CROHN'S DISEASE
     Dosage: 445 MG, INTRAVENOUS
     Route: 042
     Dates: start: 20031104
  3. REMICADE [Suspect]
     Indication: CROHN'S DISEASE
     Dosage: 445 MG, INTRAVENOUS
     Route: 042
     Dates: start: 20031217
  4. REMICADE [Suspect]
     Indication: CROHN'S DISEASE
     Dosage: 445 MG, INTRAVENOUS
     Route: 042
     Dates: start: 20040128
  5. REMICADE [Suspect]
     Indication: CROHN'S DISEASE
     Dosage: 445 MG, INTRAVENOUS
     Route: 042
     Dates: start: 20040316
  6. PREDNISONE [Concomitant]
  7. MERCAPTOPURINE [Concomitant]
  8. PROTONIX [Concomitant]
  9. PENTASA [Concomitant]
  10. COMBIVENT [Concomitant]
  11. TORAVIL (ALL OTHER NON-THERAPEUTIC PRODUCTS) [Concomitant]
  12. TIMOPTIC [Concomitant]
  13. TYLENOL [Concomitant]
  14. BENADRYL [Concomitant]

REACTIONS (9)
  - ABDOMINAL DISTENSION [None]
  - CHOLELITHIASIS [None]
  - DYSPNOEA [None]
  - NASOPHARYNGITIS [None]
  - NAUSEA [None]
  - PRURITUS [None]
  - RECTAL HAEMORRHAGE [None]
  - SYNCOPE [None]
  - WHEEZING [None]
